FAERS Safety Report 20659278 (Version 1)
Quarter: 2022Q1

REPORT INFORMATION
  Report Type: Spontaneous
  Country: US (occurrence: US)
  Receive Date: 20220331
  Receipt Date: 20220331
  Transmission Date: 20220423
  Serious: No
  Sender: FDA-Public Use
  Company Number: US-TEVA-2022-US-2015091

PATIENT
  Sex: Female

DRUGS (2)
  1. LORAZEPAM [Suspect]
     Active Substance: LORAZEPAM
     Indication: Anxiety
     Dosage: 2 MILLIGRAM DAILY; ONE TABLET IN MORNING AND ONE TABLET IN EVENING, STARTED TWO MONTHS AGO
     Route: 065
  2. LORAZEPAM [Suspect]
     Active Substance: LORAZEPAM
     Indication: Insomnia
     Dosage: 2.5 MILLIGRAM DAILY;
     Route: 065

REACTIONS (3)
  - Restlessness [Unknown]
  - Drug ineffective [Unknown]
  - Product quality issue [Unknown]
